FAERS Safety Report 8009568-X (Version None)
Quarter: 2011Q4

REPORT INFORMATION
  Report Type: 
  Country: None (occurrence: None)
  Receive Date: 20111228
  Receipt Date: 20111220
  Transmission Date: 20120403
  Serious: Yes (Life-Threatening, Hospitalization)
  Sender: FDA-Public Use
  Company Number: JP-AMGEN-US404581

PATIENT
  Age: 71 Year
  Sex: Female
  Weight: 62 kg

DRUGS (10)
  1. PREDNISOLONE [Concomitant]
     Dosage: 3 MG, 1X/DAY
     Route: 048
     Dates: start: 20080716, end: 20090715
  2. ISONIAZID [Concomitant]
     Indication: PROPHYLAXIS
     Dosage: 100 MG, 2X/DAY
     Route: 048
     Dates: start: 20080519, end: 20090616
  3. LENDORMIN [Concomitant]
     Dosage: UNK
     Route: 048
  4. ETANERCEPT [Suspect]
     Indication: RHEUMATOID ARTHRITIS
     Dosage: 25 MG, 2 TIMES/WK (LYOPHILIZED POWDER)
     Route: 058
     Dates: start: 20080519, end: 20100818
  5. ISONIAZID [Concomitant]
     Dosage: 100 MG, 2X/DAY
     Route: 048
     Dates: start: 20080519, end: 20090616
  6. ETANERCEPT [Suspect]
     Dosage: 25 MG, 2 TIMES/WK (SOLUTION FOR INJECTION)
     Route: 058
     Dates: start: 20080821, end: 20090713
  7. PREDNISOLONE [Concomitant]
     Indication: RHEUMATOID ARTHRITIS
     Dosage: 4 MG, 1X/DAY
     Route: 048
     Dates: start: 20060621, end: 20080715
  8. RHEUMATREX [Concomitant]
     Dosage: 2 MG, 2X/WEEK
     Dates: start: 20080603, end: 20090713
  9. RHEUMATREX [Concomitant]
     Indication: RHEUMATOID ARTHRITIS
     Dosage: 6 MG, WEEKLY
     Route: 048
     Dates: start: 20080124, end: 20080528
  10. LEUCOVORIN CALCIUM [Concomitant]
     Indication: PROPHYLAXIS
     Dosage: 5 MG, WEEKLY
     Route: 048
     Dates: start: 20060329, end: 20100522

REACTIONS (2)
  - VOLVULUS OF SMALL BOWEL [None]
  - GASTROINTESTINAL NECROSIS [None]
